FAERS Safety Report 16828956 (Version 1)
Quarter: 2019Q3

REPORT INFORMATION
  Report Type: Report from Study
  Country: US (occurrence: US)
  Receive Date: 20190919
  Receipt Date: 20190919
  Transmission Date: 20191005
  Serious: Yes (Hospitalization)
  Sender: FDA-Public Use
  Company Number: US-BAUSCH-BL-2019-054644

PATIENT
  Age: 69 Year
  Sex: Female
  Weight: 77.18 kg

DRUGS (1)
  1. XIFAXAN [Suspect]
     Active Substance: RIFAXIMIN
     Indication: HEPATIC ENCEPHALOPATHY
     Route: 048
     Dates: start: 2017, end: 20190912

REACTIONS (2)
  - Hospitalisation [Not Recovered/Not Resolved]
  - Therapy cessation [Unknown]

NARRATIVE: CASE EVENT DATE: 201909
